FAERS Safety Report 6965154-1 (Version None)
Quarter: 2010Q3

REPORT INFORMATION
  Report Type: 
  Country: None (occurrence: None)
  Receive Date: 20100903
  Receipt Date: 20100826
  Transmission Date: 20110219
  Serious: Yes (Other)
  Sender: FDA-Public Use
  Company Number: US-B.I. PHARMACEUTICALS,INC./RIDGEFIELD-2010-BP-08813BP

PATIENT
  Age: 89 Year
  Sex: Male
  Weight: 61.2 kg

DRUGS (7)
  1. FLOMAX [Suspect]
  2. TOVIAZ [Suspect]
     Indication: HYPERTONIC BLADDER
     Dosage: 4 MG
     Route: 048
     Dates: start: 20100601, end: 20100718
  3. TOVIAZ [Suspect]
     Dosage: 8 MG
     Route: 048
     Dates: start: 20100719
  4. HYDROCHLOROTHIAZIDE [Suspect]
     Dosage: 12.5 MG
  5. SIMVASTATIN [Suspect]
     Indication: BLOOD CHOLESTEROL INCREASED
  6. AVODART [Suspect]
  7. FINASTERIDE [Concomitant]

REACTIONS (5)
  - DRUG INTERACTION [None]
  - DYSURIA [None]
  - MIDDLE INSOMNIA [None]
  - URINARY RETENTION [None]
  - URINE FLOW DECREASED [None]
